FAERS Safety Report 25887208 (Version 1)
Quarter: 2025Q4

REPORT INFORMATION
  Report Type: Spontaneous
  Country: US (occurrence: US)
  Receive Date: 20251006
  Receipt Date: 20251006
  Transmission Date: 20260118
  Serious: No
  Sender: ABBVIE
  Company Number: US-ABBVIE-6488280

PATIENT
  Age: 63 Year
  Sex: Male
  Weight: 80.739 kg

DRUGS (2)
  1. VYALEV [Suspect]
     Active Substance: FOSCARBIDOPA\FOSLEVODOPA
     Indication: Parkinson^s disease
     Dosage: FREQUENCY TEXT: 24 HOURS PER DAY
     Route: 058
     Dates: start: 202412
  2. CARBIDOPA LEVODOPA [Concomitant]
     Active Substance: CARBIDOPA\LEVODOPA
     Indication: Parkinson^s disease
     Route: 048

REACTIONS (9)
  - Infusion site induration [Not Recovered/Not Resolved]
  - Infusion site reaction [Recovered/Resolved]
  - Infusion site haemorrhage [Recovered/Resolved]
  - Infusion site swelling [Recovered/Resolved]
  - Infusion site pain [Recovered/Resolved]
  - Infusion site erythema [Recovered/Resolved]
  - Infusion site nodule [Not Recovered/Not Resolved]
  - Device issue [Unknown]
  - Device dislocation [Unknown]

NARRATIVE: CASE EVENT DATE: 20250801
